FAERS Safety Report 7408431-2 (Version None)
Quarter: 2011Q2

REPORT INFORMATION
  Report Type: 
  Country: None (occurrence: None)
  Receive Date: 20110412
  Receipt Date: 20110405
  Transmission Date: 20111010
  Serious: Yes (Hospitalization, Other)
  Sender: FDA-Public Use
  Company Number: US-AMGEN-USASP2010005881

PATIENT
  Age: 53 Year
  Sex: Female

DRUGS (2)
  1. NPLATE [Suspect]
     Indication: IDIOPATHIC THROMBOCYTOPENIC PURPURA
     Dates: start: 20100917
  2. CORTICOSTEROIDS [Concomitant]

REACTIONS (2)
  - GENERALISED OEDEMA [None]
  - CARDIAC FAILURE CONGESTIVE [None]
